FAERS Safety Report 14038204 (Version 1)
Quarter: 2017Q4

REPORT INFORMATION
  Report Type: Spontaneous
  Country: FR (occurrence: FR)
  Receive Date: 20171004
  Receipt Date: 20171004
  Transmission Date: 20180321
  Serious: Yes (Life-Threatening, Hospitalization)
  Sender: FDA-Public Use
  Company Number: FR-AUROBINDO-AUR-APL-2017-06658

PATIENT
  Age: 63 Year
  Sex: Female

DRUGS (2)
  1. PREDNISONE (UNKNOWN) [Suspect]
     Active Substance: PREDNISONE
     Indication: SINUSITIS
     Dosage: UNK
  2. PRISTINAMYCIN [Concomitant]
     Active Substance: PRISTINAMYCIN
     Indication: SINUSITIS
     Dosage: UNK

REACTIONS (1)
  - Acute hepatic failure [Recovered/Resolved]
